FAERS Safety Report 15318866 (Version 1)
Quarter: 2018Q3

REPORT INFORMATION
  Report Type: Spontaneous
  Country: US (occurrence: US)
  Receive Date: 20180819
  Receipt Date: 20180819
  Transmission Date: 20181010
  Serious: Yes (Other)
  Sender: FDA-Public Use
  Company Number: None

PATIENT
  Age: 47 Year
  Sex: Female
  Weight: 53.1 kg

DRUGS (8)
  1. TRAMADOL. [Concomitant]
     Active Substance: TRAMADOL
  2. DEXILANT [Suspect]
     Active Substance: DEXLANSOPRAZOLE
     Indication: VOCAL CORD DYSFUNCTION
     Dosage: ?          QUANTITY:30 TABLET(S);?
     Route: 048
     Dates: start: 20180717, end: 20180818
  3. EXCEDRIN [Concomitant]
     Active Substance: ACETAMINOPHEN\ASPIRIN\CAFFEINE
  4. IMMETRIX [Concomitant]
  5. TYLENOL [Concomitant]
     Active Substance: ACETAMINOPHEN
  6. IBUPROPHEN [Concomitant]
     Active Substance: IBUPROFEN
  7. DEXILANT [Suspect]
     Active Substance: DEXLANSOPRAZOLE
     Indication: EROSIVE OESOPHAGITIS
     Dosage: ?          QUANTITY:30 TABLET(S);?
     Route: 048
     Dates: start: 20180717, end: 20180818
  8. RITADINE [Concomitant]

REACTIONS (6)
  - Pyrexia [None]
  - Diarrhoea [None]
  - Weight decreased [None]
  - Rhinorrhoea [None]
  - Chills [None]
  - Abdominal discomfort [None]

NARRATIVE: CASE EVENT DATE: 20180813
